FAERS Safety Report 8991524 (Version 1)
Quarter: 2012Q4

REPORT INFORMATION
  Report Type: 
  Country: GB (occurrence: GB)
  Receive Date: 20121231
  Receipt Date: 20121231
  Transmission Date: 20130627
  Serious: Yes (Other)
  Sender: FDA-Public Use
  Company Number: GB-RANBAXY-2012R1-63566

PATIENT
  Age: 68 Year
  Sex: Male

DRUGS (4)
  1. SIMVASTATIN [Suspect]
     Indication: HYPERCHOLESTEROLAEMIA
     Dosage: UNK
     Route: 048
     Dates: start: 2009
  2. AMLODIPINE [Concomitant]
     Indication: BLOOD PRESSURE
     Dosage: unk
     Route: 048
  3. INDAPAMIDE [Concomitant]
     Indication: BLOOD PRESSURE
     Dosage: unk
     Route: 048
  4. TADALAFIL [Concomitant]
     Indication: ERECTILE DYSFUNCTION
     Dosage: unk
     Route: 048

REACTIONS (1)
  - Memory impairment [Not Recovered/Not Resolved]
